FAERS Safety Report 7811533-X (Version None)
Quarter: 2011Q4

REPORT INFORMATION
  Report Type: 
  Country: None (occurrence: None)
  Receive Date: 20111013
  Receipt Date: 20110929
  Transmission Date: 20120403
  Serious: Yes (Death, Hospitalization)
  Sender: FDA-Public Use
  Company Number: GB-JNJFOC-20111000674

PATIENT
  Age: 25 Year
  Sex: Female

DRUGS (5)
  1. ACETAMINOPHEN [Suspect]
     Indication: NASOPHARYNGITIS
     Dates: start: 20101201
  2. COLD AND COUGH MEDICINE [Suspect]
     Indication: NASOPHARYNGITIS
  3. IBUPROFEN [Suspect]
     Indication: NASOPHARYNGITIS
  4. LEMSIP WITH PHENYLEPHRINE [Suspect]
     Indication: NASOPHARYNGITIS
     Dates: start: 20101201
  5. ACETAMINOPHEN [Suspect]

REACTIONS (5)
  - DRUG ABUSE [None]
  - DRUG ADMINISTRATION ERROR [None]
  - LOWER RESPIRATORY TRACT INFECTION [None]
  - ACCIDENTAL OVERDOSE [None]
  - HEPATIC FAILURE [None]
